FAERS Safety Report 9360592 (Version 1)
Quarter: 2013Q2

REPORT INFORMATION
  Report Type: Spontaneous
  Country: FR (occurrence: FR)
  Receive Date: 20130621
  Receipt Date: 20130621
  Transmission Date: 20140414
  Serious: Yes (Death)
  Sender: FDA-Public Use
  Company Number: FR-SANOFI-AVENTIS-2013SA060776

PATIENT
  Age: 65 Year
  Sex: Male

DRUGS (11)
  1. JEVTANA [Suspect]
     Indication: PROSTATE CANCER METASTATIC
     Route: 042
     Dates: start: 20130114, end: 201305
  2. PREVISCAN [Concomitant]
     Route: 065
  3. METHADONE [Concomitant]
     Route: 065
  4. CORTANCYL [Concomitant]
     Route: 065
  5. DIFFU K [Concomitant]
     Route: 065
  6. DIGOXINE [Concomitant]
     Route: 065
  7. DISTILBENE [Concomitant]
     Route: 065
  8. INEXIUM [Concomitant]
     Route: 065
  9. LASILIX [Concomitant]
     Route: 065
  10. ZOPHREN [Concomitant]
     Route: 065
  11. VERSATIS [Concomitant]
     Dosage: PATCH
     Route: 065

REACTIONS (10)
  - Interstitial lung disease [Fatal]
  - Dyspnoea exertional [Fatal]
  - Productive cough [Fatal]
  - Oxygen saturation decreased [Fatal]
  - Rales [Fatal]
  - Respiratory alkalosis [Fatal]
  - C-reactive protein increased [Fatal]
  - N-terminal prohormone brain natriuretic peptide increased [Fatal]
  - Corynebacterium test positive [Fatal]
  - Leukocytosis [Fatal]
